FAERS Safety Report 8476025-6 (Version None)
Quarter: 2012Q2

REPORT INFORMATION
  Report Type: 
  Country: None (occurrence: None)
  Receive Date: 20120628
  Receipt Date: 20120619
  Transmission Date: 20120825
  Serious: Yes (Hospitalization)
  Sender: FDA-Public Use
  Company Number: US-JNJFOC-20120514501

PATIENT
  Sex: Male
  Weight: 100.25 kg

DRUGS (18)
  1. ALBUTEROL [Concomitant]
     Route: 055
  2. METAMUCIL-2 [Concomitant]
     Route: 048
  3. XARELTO [Suspect]
     Indication: CEREBROVASCULAR ACCIDENT PROPHYLAXIS
     Route: 048
     Dates: start: 20120101, end: 20120404
  4. MULTAQ [Concomitant]
     Route: 048
  5. ALPRAZOLAM [Concomitant]
     Route: 048
  6. XARELTO [Suspect]
     Indication: ATRIAL FIBRILLATION
     Route: 048
     Dates: start: 20120101, end: 20120404
  7. ASPIRIN [Concomitant]
  8. CARVEDILOL [Concomitant]
     Route: 048
  9. DIOVAN [Concomitant]
     Route: 048
  10. VITAMIN D [Concomitant]
     Route: 048
  11. LIPITOR [Concomitant]
     Route: 048
  12. GLUCOSAMINE [Concomitant]
     Route: 048
  13. AVODART [Concomitant]
     Route: 048
  14. NIASPAN [Concomitant]
     Route: 048
  15. OMEPRAZOLE [Concomitant]
     Route: 048
  16. CALTRATE 600 D [Concomitant]
     Route: 048
  17. ADVAIR DISKUS 100/50 [Concomitant]
     Dosage: DISKUS- 250-50 MCG
     Route: 055
  18. EPLERENONE [Concomitant]
     Route: 048
     Dates: start: 20111208

REACTIONS (4)
  - GINGIVAL BLEEDING [None]
  - HAEMATURIA [None]
  - DRUG PRESCRIBING ERROR [None]
  - HAEMOPTYSIS [None]
